FAERS Safety Report 4545099-7 (Version None)
Quarter: 2005Q1

REPORT INFORMATION
  Report Type: 
  Country: None (occurrence: None)
  Receive Date: 20050103
  Receipt Date: 20041221
  Transmission Date: 20050727
  Serious: Yes (Hospitalization)
  Sender: FDA-Public Use
  Company Number: 2004102919

PATIENT
  Age: 69 Year
  Sex: Female

DRUGS (7)
  1. LIPITOR [Suspect]
     Indication: HYPERLIPIDAEMIA
     Dosage: 10 MG (10 MG, 1 IN 1 D), ORAL
     Route: 048
     Dates: start: 20040501, end: 20041121
  2. VALSARTAN (VALSARTAN) [Concomitant]
  3. ISOSORBIDE MONONITRATE [Concomitant]
  4. BETAXOLOL HYDROCHLORIDE (BETAXOLOL HYDROCHLORIDE) [Concomitant]
  5. ASPIRIN [Concomitant]
  6. ATENOLOL [Concomitant]
  7. AMLODIPINE BESYLATE [Concomitant]

REACTIONS (6)
  - DECREASED APPETITE [None]
  - HEPATIC FUNCTION ABNORMAL [None]
  - HEPATITIS A [None]
  - JAUNDICE [None]
  - PLEURAL EFFUSION [None]
  - RHABDOMYOLYSIS [None]
